FAERS Safety Report 11779085 (Version 1)
Quarter: 2015Q4

REPORT INFORMATION
  Report Type: Spontaneous
  Country: TW (occurrence: TW)
  Receive Date: 20151125
  Receipt Date: 20151125
  Transmission Date: 20160304
  Serious: Yes (Other)
  Sender: FDA-Public Use
  Company Number: TW-HQ SPECIALTY-TW-2015INT000640

PATIENT
  Age: 65 Year
  Sex: Female

DRUGS (4)
  1. VINBLASTINE /00115802/ [Suspect]
     Active Substance: VINBLASTINE SULFATE
     Indication: URINARY TRACT NEOPLASM
     Dosage: UNK
  2. METHOTREXATE [Suspect]
     Active Substance: METHOTREXATE
     Indication: URINARY TRACT NEOPLASM
     Dosage: UNK
  3. EPIRUBICIN [Suspect]
     Active Substance: EPIRUBICIN
     Indication: URINARY TRACT NEOPLASM
     Dosage: UNK
  4. CISPLATIN. [Suspect]
     Active Substance: CISPLATIN
     Indication: URINARY TRACT NEOPLASM
     Dosage: UNK

REACTIONS (2)
  - Chronic hepatitis B [Unknown]
  - Hepatitis B [None]
